FAERS Safety Report 15126097 (Version 3)
Quarter: 2018Q3

REPORT INFORMATION
  Report Type: Report from Study
  Country: GB (occurrence: GB)
  Receive Date: 20180710
  Receipt Date: 20180730
  Transmission Date: 20181010
  Serious: Yes (Other)
  Sender: FDA-Public Use
  Company Number: PHHY2018GB035581

PATIENT
  Age: 56 Year
  Sex: Female

DRUGS (2)
  1. COSENTYX [Suspect]
     Active Substance: SECUKINUMAB
     Indication: PSORIATIC ARTHROPATHY
     Dosage: 300 MG, QMO (PREFILLED PEN) (WEEK 0 TO 3, THEREAFTER 300 MG EVERY 4 WEEKS)
     Route: 058
     Dates: start: 20180618
  2. COSENTYX [Suspect]
     Active Substance: SECUKINUMAB
     Indication: SPONDYLOARTHROPATHY

REACTIONS (16)
  - Pruritus [Unknown]
  - Animal scratch [Recovering/Resolving]
  - Head injury [Unknown]
  - Fatigue [Not Recovered/Not Resolved]
  - Skin reaction [Recovering/Resolving]
  - Rash pruritic [Recovering/Resolving]
  - Blood pressure increased [Unknown]
  - Hot flush [Recovered/Resolved]
  - Dizziness [Not Recovered/Not Resolved]
  - Abdominal pain upper [Recovering/Resolving]
  - Joint swelling [Not Recovered/Not Resolved]
  - Fall [Unknown]
  - Vulvovaginal candidiasis [Not Recovered/Not Resolved]
  - Rash macular [Unknown]
  - Malaise [Unknown]
  - Loss of consciousness [Not Recovered/Not Resolved]

NARRATIVE: CASE EVENT DATE: 20180618
